FAERS Safety Report 8901966 (Version 1)
Quarter: 2012Q4

REPORT INFORMATION
  Report Type: 
  Country: DE (occurrence: DE)
  Receive Date: 20121112
  Receipt Date: 20121112
  Transmission Date: 20130627
  Serious: Yes (Death)
  Sender: FDA-Public Use
  Company Number: PHHO2012DE016168

PATIENT
  Age: 33 Year
  Sex: Male

DRUGS (4)
  1. METOPROLOL [Suspect]
     Indication: SUICIDAL IDEATION
     Route: 048
  2. AMLODIPINE [Suspect]
     Indication: SUICIDAL IDEATION
     Route: 048
  3. DIPHENHYDRAMINE HYDROCHLORIDE [Suspect]
     Indication: SUICIDAL IDEATION
     Route: 048
  4. ALCOHOL [Suspect]

REACTIONS (2)
  - Completed suicide [Fatal]
  - Intentional overdose [Fatal]
